FAERS Safety Report 4392646-4 (Version None)
Quarter: 2004Q3

REPORT INFORMATION
  Report Type: 
  Country: None (occurrence: None)
  Receive Date: 20040708
  Receipt Date: 20040625
  Transmission Date: 20050211
  Serious: Yes (Hospitalization)
  Sender: FDA-Public Use
  Company Number: PHBS2004CH08426

PATIENT
  Age: 41 Year
  Sex: Male

DRUGS (3)
  1. VOLTAREN [Suspect]
     Indication: PAIN
     Dosage: 150 MG/DAY
     Dates: start: 20040601, end: 20040603
  2. RULID [Suspect]
     Indication: PYREXIA
     Dosage: 150 MG/DAY
     Dates: start: 20040601, end: 20040603
  3. DAFALGAN [Concomitant]
     Indication: PYREXIA
     Dates: start: 20040601

REACTIONS (15)
  - ANAEMIA [None]
  - BETA-N-ACETYL-D-GLUCOSAMINIDASE INCREASED [None]
  - BLOOD CREATININE INCREASED [None]
  - ESCHERICHIA BACTERAEMIA [None]
  - HYPERKALAEMIA [None]
  - HYPERPHOSPHATAEMIA [None]
  - HYPOCALCAEMIA [None]
  - HYPOTENSION [None]
  - PERICARDIAL RUB [None]
  - PRURITUS [None]
  - RASH PAPULAR [None]
  - RENAL FAILURE ACUTE [None]
  - RENAL PAIN [None]
  - URINARY SEDIMENT PRESENT [None]
  - WHITE BLOOD CELL COUNT INCREASED [None]
